FAERS Safety Report 26095354 (Version 2)
Quarter: 2025Q4

REPORT INFORMATION
  Report Type: Spontaneous
  Country: US (occurrence: US)
  Receive Date: 20251127
  Receipt Date: 20251210
  Transmission Date: 20260117
  Serious: No
  Sender: TOLMAR
  Company Number: US-Tolmar-TLM-2025-08753

PATIENT

DRUGS (1)
  1. JATENZO [Suspect]
     Active Substance: TESTOSTERONE UNDECANOATE
     Indication: Androgen deficiency

REACTIONS (2)
  - Therapy cessation [Unknown]
  - Haemoglobin increased [Unknown]
